FAERS Safety Report 25186446 (Version 4)
Quarter: 2025Q2

REPORT INFORMATION
  Report Type: Spontaneous
  Country: DE (occurrence: DE)
  Receive Date: 20250410
  Receipt Date: 20250524
  Transmission Date: 20250716
  Serious: Yes (Other)
  Sender: ABBVIE
  Company Number: DE-ABBOTT-2025A-1398025

PATIENT
  Age: 34 Year
  Sex: Female
  Weight: 47 kg

DRUGS (2)
  1. PANCRELIPASE [Suspect]
     Active Substance: PANCRELIPASE
     Indication: Product used for unknown indication
     Dosage: 25000
     Route: 048
     Dates: start: 20180813
  2. RIBAVARIN [Concomitant]
     Active Substance: RIBAVIRIN
     Indication: Antiviral treatment

REACTIONS (2)
  - Chronic hepatitis [Recovered/Resolved]
  - Hepatitis E [Unknown]

NARRATIVE: CASE EVENT DATE: 20231218
